FAERS Safety Report 7693546-4 (Version None)
Quarter: 2011Q3

REPORT INFORMATION
  Report Type: 
  Country: None (occurrence: None)
  Receive Date: 20110815
  Receipt Date: 20110727
  Transmission Date: 20111222
  Serious: Yes (Other)
  Sender: FDA-Public Use
  Company Number: 2011SP035304

PATIENT
  Age: 80 Year
  Sex: Male
  Weight: 90 kg

DRUGS (7)
  1. CLONID-OPHTAL [Concomitant]
  2. RAMIPRIL [Concomitant]
  3. MIRTAZAPINE [Suspect]
     Indication: DEPRESSION
     Dosage: QD
  4. XALATAN [Concomitant]
  5. AZOPT [Concomitant]
  6. MIRTAZAPINE [Suspect]
     Indication: DEPRESSION
     Dosage: QD
  7. MIRTAZAPINE [Suspect]
     Indication: DEPRESSION
     Dosage: QD

REACTIONS (2)
  - MUSCULOSKELETAL STIFFNESS [None]
  - PARESIS [None]
